FAERS Safety Report 6666582-4 (Version None)
Quarter: 2010Q2

REPORT INFORMATION
  Report Type: 
  Country: None (occurrence: None)
  Receive Date: 20100404
  Receipt Date: 20090720
  Transmission Date: 20101027
  Serious: No
  Sender: FDA-Public Use
  Company Number: US-ALLERGAN-0910193US

PATIENT
  Age: 77 Year
  Sex: Male

DRUGS (5)
  1. ZYMAR [Suspect]
     Indication: PREOPERATIVE CARE
     Dosage: 1 GTT, SINGLE
     Route: 047
  2. MINOXIDIL [Concomitant]
     Indication: BLOOD PRESSURE
  3. ACULAR LS [Concomitant]
     Indication: POSTOPERATIVE CARE
  4. ANESTHESIA [Concomitant]
     Indication: ANAESTHESIA
     Dosage: UNK, SINGLE
     Route: 042
  5. ANESTHESIA [Concomitant]
     Indication: INTRAOPERATIVE CARE

REACTIONS (2)
  - DYSPNOEA [None]
  - HYPERSENSITIVITY [None]
